FAERS Safety Report 9002096 (Version 1)
Quarter: 2013Q1

REPORT INFORMATION
  Report Type: Spontaneous
  Country: US (occurrence: None)
  Receive Date: 20130102
  Receipt Date: 20130102
  Transmission Date: 20140127
  Serious: Yes (Hospitalization)
  Sender: FDA-Public Use
  Company Number: None

PATIENT
  Age: 57 Year
  Sex: Male
  Weight: 90.4 kg

DRUGS (2)
  1. HYDROCHLOROTHIAZIDE [Suspect]
     Indication: OEDEMA
     Route: 048
     Dates: start: 20100706, end: 20121025
  2. FUROSEMIDE [Suspect]
     Route: 048
     Dates: start: 20100706, end: 20121025

REACTIONS (4)
  - Asthenia [None]
  - Dizziness [None]
  - Hypokalaemia [None]
  - Dehydration [None]
